FAERS Safety Report 5701672-1 (Version None)
Quarter: 2008Q2

REPORT INFORMATION
  Report Type: 
  Country: None (occurrence: None)
  Receive Date: 20080411
  Receipt Date: 20080331
  Transmission Date: 20081010
  Serious: Yes (Life-Threatening, Hospitalization)
  Sender: FDA-Public Use
  Company Number: FR-WYE-H03435608

PATIENT
  Age: 95 Year
  Sex: Female

DRUGS (5)
  1. EUPANTOL [Suspect]
  2. VITAMIN B-12 [Concomitant]
     Dosage: UNKNOWN
  3. ASPEGIC 1000 [Concomitant]
     Dosage: UNKNOWN
  4. MODURETIC 5-50 [Suspect]
     Indication: ESSENTIAL HYPERTENSION
  5. ADANCOR [Concomitant]
     Dosage: UNKNOWN

REACTIONS (13)
  - DEHYDRATION [None]
  - DIET REFUSAL [None]
  - GENERAL PHYSICAL HEALTH DETERIORATION [None]
  - HYPERSOMNIA [None]
  - HYPOKALAEMIA [None]
  - HYPONATRAEMIA [None]
  - HYPOREFLEXIA [None]
  - JOINT HYPEREXTENSION [None]
  - RESPIRATORY ACIDOSIS [None]
  - TACHYARRHYTHMIA [None]
  - UNEVALUABLE EVENT [None]
  - URINARY TRACT INFECTION [None]
  - WEIGHT DECREASED [None]
